FAERS Safety Report 6944705-7 (Version None)
Quarter: 2010Q3

REPORT INFORMATION
  Report Type: 
  Country: None (occurrence: None)
  Receive Date: 20100827
  Receipt Date: 20100818
  Transmission Date: 20110219
  Serious: Yes (Death, Life-Threatening, Hospitalization)
  Sender: FDA-Public Use
  Company Number: HU-JNJFOC-20100401056

PATIENT
  Age: 47 Year
  Sex: Female
  Weight: 120 kg

DRUGS (4)
  1. REMICADE [Suspect]
     Indication: PSORIASIS
     Route: 042
  2. REMICADE [Suspect]
     Route: 042
  3. REMICADE [Suspect]
     Route: 042
  4. FERROUS SULFATE-CYANOCOBALAMIN -FOLIC ACID [Concomitant]

REACTIONS (2)
  - DEATH [None]
  - MICROCYTIC ANAEMIA [None]
